FAERS Safety Report 15955231 (Version 3)
Quarter: 2020Q3

REPORT INFORMATION
  Report Type: Spontaneous
  Country: FR (occurrence: FR)
  Receive Date: 20190213
  Receipt Date: 20200806
  Transmission Date: 20201102
  Serious: Yes (Hospitalization, Disabling, Other)
  Sender: FDA-Public Use
  Company Number: FR-AUROBINDO-AUR-APL-2019-007214

PATIENT
  Age: 81 Year
  Sex: Female
  Weight: 48 kg

DRUGS (34)
  1. AMIODARONE [Suspect]
     Active Substance: AMIODARONE
     Dosage: UNK
     Route: 065
     Dates: start: 201708
  2. CORDARONE [Suspect]
     Active Substance: AMIODARONE HYDROCHLORIDE
     Dosage: UNK
     Route: 065
     Dates: start: 20170810, end: 201802
  3. UVEDOSE [Concomitant]
     Active Substance: CHOLECALCIFEROL
     Indication: PRODUCT USED FOR UNKNOWN INDICATION
     Dosage: UNK
     Route: 065
     Dates: start: 2018
  4. CYMBALTA [Concomitant]
     Active Substance: DULOXETINE HYDROCHLORIDE
     Indication: PRODUCT USED FOR UNKNOWN INDICATION
     Dosage: UNK
     Route: 065
  5. XARELTO [Concomitant]
     Active Substance: RIVAROXABAN
     Indication: PRODUCT USED FOR UNKNOWN INDICATION
     Dosage: 1 DOSAGE FORM, ONCE A DAY
     Route: 065
     Dates: start: 20170515, end: 201707
  6. LEVOTHYROX [Concomitant]
     Active Substance: LEVOTHYROXINE
     Indication: PRODUCT USED FOR UNKNOWN INDICATION
     Dosage: 1 DOSAGE FORM, ONCE A DAY
     Route: 065
     Dates: start: 2003
  7. DIFFU K [Concomitant]
     Active Substance: POTASSIUM CHLORIDE
     Dosage: 2 DOSAGE FORM, 3 TIMES A DAY
     Route: 065
     Dates: start: 20170803
  8. DEBRIDAT [Concomitant]
     Active Substance: TRIMEBUTINE MALEATE
     Indication: PRODUCT USED FOR UNKNOWN INDICATION
     Dosage: UNK
     Route: 065
  9. STILNOX [Concomitant]
     Active Substance: ZOLPIDEM TARTRATE
     Indication: PRODUCT USED FOR UNKNOWN INDICATION
     Dosage: 1 DOSAGE FORM, ONCE A DAY
     Route: 065
  10. AMIODARONE [Suspect]
     Active Substance: AMIODARONE
     Indication: ATRIAL FIBRILLATION
     Dosage: UNK, 1 UNIT ON MORNING EXCEPT SUNDAY  AND SATURDAY
     Route: 065
     Dates: start: 201801
  11. LASILIX [Concomitant]
     Active Substance: FUROSEMIDE
     Dosage: 1 DOSAGE FORM, ONCE A DAY
     Route: 065
     Dates: start: 20170515, end: 201707
  12. CORDARONE [Suspect]
     Active Substance: AMIODARONE HYDROCHLORIDE
     Dosage: UNK
     Route: 065
     Dates: end: 201802
  13. ZOLPIDEM [Concomitant]
     Active Substance: ZOLPIDEM TARTRATE
     Indication: PRODUCT USED FOR UNKNOWN INDICATION
     Dosage: UNK
     Route: 065
     Dates: start: 2018
  14. STILNOX [Concomitant]
     Active Substance: ZOLPIDEM TARTRATE
     Dosage: 10 MILLIGRAM, ONCE A DAY
     Route: 065
  15. LASILIX [Concomitant]
     Active Substance: FUROSEMIDE
     Indication: PRODUCT USED FOR UNKNOWN INDICATION
     Dosage: 0.25 DOSAGE FORM,QD, 1 / 4UNIT ON MORNING
     Route: 065
     Dates: start: 201707
  16. LASILIX [Concomitant]
     Active Substance: FUROSEMIDE
     Dosage: 1 DOSAGE FORM, ONCE A DAY
     Route: 065
     Dates: start: 2018
  17. ATENOLOL. [Concomitant]
     Active Substance: ATENOLOL
     Dosage: 0.5 DOSAGE FORM, ONCE A DAY
     Route: 065
     Dates: start: 20170803
  18. LANSOPRAZOLE. [Concomitant]
     Active Substance: LANSOPRAZOLE
     Indication: PRODUCT USED FOR UNKNOWN INDICATION
     Dosage: 1 DOSAGE FORM, ONCE A DAY
     Route: 065
     Dates: start: 2018
  19. PREDNISONE. [Concomitant]
     Active Substance: PREDNISONE
     Indication: PRODUCT USED FOR UNKNOWN INDICATION
     Dosage: 40 MILLIGRAM, ONCE A DAY
     Route: 065
     Dates: start: 20180123
  20. CORDARONE [Suspect]
     Active Substance: AMIODARONE HYDROCHLORIDE
     Dosage: 1 DOSAGE FORM, ONCE A DAY
     Route: 065
  21. FORLAX [Concomitant]
     Active Substance: POLYETHYLENE GLYCOL 4000
     Indication: PRODUCT USED FOR UNKNOWN INDICATION
     Dosage: 1 DOSAGE FORM, DAILY (1 DF, QD, 1UNIT DAILY)
     Route: 065
     Dates: start: 20170803
  22. ATENOLOL. [Concomitant]
     Active Substance: ATENOLOL
     Indication: PRODUCT USED FOR UNKNOWN INDICATION
     Dosage: 1 DOSAGE FORM, DAILY, 1 UNIT DAILY
     Route: 065
     Dates: start: 201706
  23. XARELTO [Concomitant]
     Active Substance: RIVAROXABAN
     Dosage: 1 DOSAGE FORM, ONCE A DAY
     Route: 065
     Dates: start: 201707
  24. ALDACTONE [Concomitant]
     Active Substance: SPIRONOLACTONE
     Indication: PRODUCT USED FOR UNKNOWN INDICATION
     Dosage: 0.5 DOSAGE FORM, ONCE A DAY (QD, ? UNITS DAILY)
     Route: 065
     Dates: start: 20170803
  25. DIFFU K [Concomitant]
     Active Substance: POTASSIUM CHLORIDE
     Dosage: 3 DOSAGE FORM, ONCE A DAY
     Route: 065
  26. AMIODARONE [Suspect]
     Active Substance: AMIODARONE
     Dosage: UNK,1 UNIT ON MORNING EXCEPT SUNDAY  AND SATURDAY
     Route: 065
     Dates: start: 20170515, end: 20180220
  27. DIFFU K [Concomitant]
     Active Substance: POTASSIUM CHLORIDE
     Indication: PRODUCT USED FOR UNKNOWN INDICATION
     Dosage: 1 DOSAGE FORM, 3 TIMES A DAY
     Route: 065
     Dates: start: 201707, end: 201707
  28. DIFFU K [Concomitant]
     Active Substance: POTASSIUM CHLORIDE
     Dosage: 1 DOSAGE FORM, TWO TIMES A DAY (1 DF, BID, 1 UNIT TWICE DAILY)
     Route: 065
     Dates: start: 201707
  29. DULOXETINE. [Concomitant]
     Active Substance: DULOXETINE
     Indication: PRODUCT USED FOR UNKNOWN INDICATION
     Dosage: 2 DOSAGE FORM, ONCE A DAY
     Route: 065
     Dates: start: 20170803
  30. MOVICOL [Concomitant]
     Active Substance: POLYETHYLENE GLYCOL 3350\POTASSIUM CHLORIDE\SODIUM BICARBONATE\SODIUM CHLORIDE
     Indication: PRODUCT USED FOR UNKNOWN INDICATION
     Dosage: 1 DOSAGE FORM, TWO TIMES A DAY (1 DF, BID, 1 UNIT  TWICE DAILY)
     Route: 065
     Dates: start: 201706
  31. CORDARONE [Suspect]
     Active Substance: AMIODARONE HYDROCHLORIDE
     Indication: PRODUCT USED FOR UNKNOWN INDICATION
     Dosage: UNK, 1 UNIT ON MORNING EXCEPT SUNDAY
     Route: 065
     Dates: start: 201707, end: 20170713
  32. CORDARONE [Suspect]
     Active Substance: AMIODARONE HYDROCHLORIDE
     Dosage: 2 DOSAGE FORM, ONCE A DAY,2 UNITS ON MORNING
     Route: 065
     Dates: start: 20170515
  33. ATENOLOL. [Concomitant]
     Active Substance: ATENOLOL
     Dosage: UNK
     Route: 065
  34. MODOPAR [Concomitant]
     Active Substance: BENSERAZIDE HYDROCHLORIDE\LEVODOPA
     Indication: PRODUCT USED FOR UNKNOWN INDICATION
     Dosage: 3 DOSAGE FORM, ONCE A DAY
     Route: 065
     Dates: start: 2018

REACTIONS (26)
  - Eye haemorrhage [Unknown]
  - Hypercapnia [Unknown]
  - Optic neuritis [Not Recovered/Not Resolved]
  - Dyspnoea [Unknown]
  - Retinal vein thrombosis [Unknown]
  - Optic neuropathy [Unknown]
  - Atrial fibrillation [Unknown]
  - Anaemia [Unknown]
  - Parkinsonism [Unknown]
  - Diplopia [Unknown]
  - Papilloedema [Not Recovered/Not Resolved]
  - Extrapyramidal disorder [Unknown]
  - Aortic valve calcification [Unknown]
  - Depression [Unknown]
  - Pneumonia [Unknown]
  - Condition aggravated [Unknown]
  - Cerebellar syndrome [Unknown]
  - Cardiac failure [Unknown]
  - Visual acuity reduced [Recovering/Resolving]
  - Tremor [Unknown]
  - Neuropathy peripheral [Unknown]
  - Arterial disorder [Unknown]
  - Optic atrophy [Unknown]
  - Pleural effusion [Unknown]
  - Hypoxia [Unknown]
  - Ophthalmic vein thrombosis [Unknown]

NARRATIVE: CASE EVENT DATE: 201706
